FAERS Safety Report 5372458-5 (Version None)
Quarter: 2007Q2

REPORT INFORMATION
  Report Type: 
  Country: None (occurrence: None)
  Receive Date: 20070625
  Receipt Date: 20070615
  Transmission Date: 20071010
  Serious: Yes (Hospitalization)
  Sender: FDA-Public Use
  Company Number: 163-20785-07060907

PATIENT
  Age: 57 Year
  Sex: Male

DRUGS (17)
  1. THALOMID [Suspect]
     Indication: MULTIPLE MYELOMA
     Dosage: 100 MG, QD, ORAL
     Route: 048
     Dates: start: 20050101
  2. DEXAMETHASONE TAB [Suspect]
     Indication: MULTIPLE MYELOMA
     Dosage: 40 MG, ORAL
     Route: 047
     Dates: start: 20050524
  3. VELCADE [Suspect]
     Indication: MULTIPLE MYELOMA
     Dosage: 1 MG/M2, INTRAVENOUS
     Route: 042
     Dates: start: 20050408, end: 20050418
  4. CISPLATIN [Suspect]
     Indication: MULTIPLE MYELOMA
     Dosage: 10 MG/M2, INTRAVENOUS
     Route: 042
     Dates: start: 20050411, end: 20050414
  5. ADRIAMYCIN PFS [Suspect]
     Indication: MULTIPLE MYELOMA
     Dosage: 10 MG/M2, INTRAVENOUS
     Route: 042
     Dates: start: 20050411, end: 20050414
  6. CYCLOPHOSPHAMIDE [Suspect]
     Indication: MULTIPLE MYELOMA
     Dosage: 400 MG/M2, INTRAVENOUS
     Route: 042
     Dates: start: 20050411, end: 20050414
  7. ETOPOSIDE [Suspect]
     Indication: MULTIPLE MYELOMA
     Dosage: 40 MG/M2, INTRAVENOUS
     Route: 042
     Dates: start: 20050411, end: 20050414
  8. MELPHALAN (MELPHALAN) [Suspect]
     Indication: MULTIPLE MYELOMA
     Dosage: 200 MG/M2
     Dates: start: 20050524
  9. AMBIEN [Suspect]
     Indication: DRUG USE FOR UNKNOWN INDICATION
     Dosage: 5 MG, QHS, ORAL
     Route: 048
  10. LEXAPRO [Suspect]
     Indication: DRUG USE FOR UNKNOWN INDICATION
     Dosage: 20 MG, ORAL
     Route: 048
  11. ACYCLOVIR [Concomitant]
  12. FOLIC ACID [Concomitant]
  13. LEVAQUIN [Concomitant]
  14. FAMOTIDINE [Concomitant]
  15. HEPARIN [Concomitant]
  16. FLAGYL [Concomitant]
  17. IMODIUM [Concomitant]

REACTIONS (20)
  - CATHETER RELATED INFECTION [None]
  - CHEST PAIN [None]
  - COLITIS [None]
  - DIARRHOEA [None]
  - FEBRILE NEUTROPENIA [None]
  - HAEMATOCRIT DECREASED [None]
  - HAEMOGLOBIN DECREASED [None]
  - HYPERSOMNIA [None]
  - HYPOTENSION [None]
  - METASTATIC RENAL CELL CARCINOMA [None]
  - MUCOSAL INFLAMMATION [None]
  - MUSCULAR WEAKNESS [None]
  - PARAINFLUENZAE VIRUS INFECTION [None]
  - PNEUMONIA [None]
  - PNEUMONITIS [None]
  - PRODUCTIVE COUGH [None]
  - RENAL FAILURE [None]
  - SINUSITIS [None]
  - STREPTOCOCCAL INFECTION [None]
  - TACHYCARDIA [None]
